FAERS Safety Report 22388651 (Version 2)
Quarter: 2023Q2

REPORT INFORMATION
  Report Type: Spontaneous
  Country: US (occurrence: US)
  Receive Date: 20230531
  Receipt Date: 20230606
  Transmission Date: 20230721
  Serious: Yes (Disabling, Other)
  Sender: FDA-Public Use
  Company Number: US-ORGANON-O2305USA002853

PATIENT
  Age: 63 Year
  Sex: Female

DRUGS (2)
  1. FOSAMAX [Suspect]
     Active Substance: ALENDRONATE SODIUM
     Indication: Product used for unknown indication
     Dosage: UNK
     Route: 048
  2. OFEV [Suspect]
     Active Substance: NINTEDANIB
     Indication: Idiopathic pulmonary fibrosis
     Dosage: 200 MILLIGRAM (100 MILLIGRAM, 1 IN 12 HOUR), TAKE 1 CAPSULE (100 MG) BY MOUTH IN THE MORNING AND AT
     Route: 048

REACTIONS (22)
  - Polycythaemia vera [Unknown]
  - Polycythaemia [Not Recovered/Not Resolved]
  - Constipation [Not Recovered/Not Resolved]
  - Weight decreased [Unknown]
  - Hyperphagia [Unknown]
  - Bone density decreased [Not Recovered/Not Resolved]
  - Dyspnoea exertional [Unknown]
  - Heart rate increased [Unknown]
  - Anxiety [Unknown]
  - Chromaturia [Unknown]
  - Urine odour abnormal [Unknown]
  - Depression [Unknown]
  - Cough [Unknown]
  - Wheezing [Unknown]
  - Memory impairment [Not Recovered/Not Resolved]
  - Micturition disorder [Unknown]
  - Insomnia [Unknown]
  - Fatigue [Not Recovered/Not Resolved]
  - Decreased appetite [Unknown]
  - Musculoskeletal chest pain [Unknown]
  - Abdominal pain [Not Recovered/Not Resolved]
  - Arthralgia [Unknown]

NARRATIVE: CASE EVENT DATE: 20221201
